FAERS Safety Report 7214045-X (Version None)
Quarter: 2011Q1

REPORT INFORMATION
  Report Type: 
  Country: None (occurrence: None)
  Receive Date: 20110107
  Receipt Date: 20101228
  Transmission Date: 20110831
  Serious: Yes (Hospitalization)
  Sender: FDA-Public Use
  Company Number: US-BIOGENIDEC-2010BI044886

PATIENT
  Age: 57 Year
  Sex: Female

DRUGS (14)
  1. TYSABRI [Suspect]
     Route: 042
     Dates: start: 20070217
  2. MS CONTIN [Concomitant]
     Indication: PAIN
     Dates: start: 20070910
  3. MORPHINE [Concomitant]
     Indication: PAIN
     Dates: start: 20100424
  4. GABAPENTIN [Concomitant]
  5. SIMVASTATIN [Concomitant]
  6. APIDRA [Concomitant]
  7. VITAMIN B COMPLEX [Concomitant]
  8. LASIX [Concomitant]
  9. METFORMIN HCL [Concomitant]
  10. ATENOLOL [Concomitant]
  11. FUROSEMIDE [Concomitant]
  12. SINGULAIR [Concomitant]
  13. TYSABRI [Suspect]
     Indication: MULTIPLE SCLEROSIS
     Route: 042
     Dates: start: 20050216, end: 20050216
  14. LANTUS [Concomitant]

REACTIONS (3)
  - PROGRESSIVE MULTIFOCAL LEUKOENCEPHALOPATHY [None]
  - CORONARY ARTERY DISEASE [None]
  - SLEEP APNOEA SYNDROME [None]
